FAERS Safety Report 19606302 (Version 6)
Quarter: 2022Q1

REPORT INFORMATION
  Report Type: Report from Study
  Country: US (occurrence: US)
  Receive Date: 20210725
  Receipt Date: 20220311
  Transmission Date: 20220423
  Serious: No
  Sender: FDA-Public Use
  Company Number: NVSC2021US159521

PATIENT
  Sex: Male

DRUGS (4)
  1. ENTRESTO [Suspect]
     Active Substance: SACUBITRIL\VALSARTAN
     Indication: Product used for unknown indication
     Dosage: UNK
     Route: 065
  2. ENTRESTO [Suspect]
     Active Substance: SACUBITRIL\VALSARTAN
     Dosage: 0.5 DF (24/26 MG), BID
     Route: 065
  3. ENTRESTO [Suspect]
     Active Substance: SACUBITRIL\VALSARTAN
     Dosage: UNK (3 PILLS A DAY)
     Route: 065
  4. ENTRESTO [Suspect]
     Active Substance: SACUBITRIL\VALSARTAN
     Dosage: UNK UNK, BID
     Route: 065

REACTIONS (9)
  - Underdose [Unknown]
  - Product use issue [Unknown]
  - Wrong technique in product usage process [Not Recovered/Not Resolved]
  - Chest discomfort [Unknown]
  - Hypoaesthesia [Unknown]
  - Hypotension [Unknown]
  - Dizziness [Unknown]
  - Drug ineffective [Unknown]
  - Fatigue [Unknown]
